FAERS Safety Report 5831689-8 (Version None)
Quarter: 2008Q3

REPORT INFORMATION
  Report Type: 
  Country: None (occurrence: None)
  Receive Date: 20080729
  Receipt Date: 20080711
  Transmission Date: 20090109
  Serious: Yes (Disabling)
  Sender: FDA-Public Use
  Company Number: 2008BI017352

PATIENT
  Age: 37 Year
  Sex: Male

DRUGS (2)
  1. TYSABRI [Suspect]
     Indication: MULTIPLE SCLEROSIS
     Dosage: 300 MG; QM; IV
     Route: 042
     Dates: start: 20070117, end: 20080627
  2. METHYLPREDNISOLONE [Concomitant]

REACTIONS (11)
  - ANTICONVULSANT DRUG LEVEL DECREASED [None]
  - CEREBELLAR SYNDROME [None]
  - DEPRESSION [None]
  - HIV INFECTION [None]
  - ISCHAEMIA [None]
  - MOTOR NEURONE DISEASE [None]
  - MULTIPLE SCLEROSIS RELAPSE [None]
  - POSTICTAL PARALYSIS [None]
  - PROGRESSIVE MULTIFOCAL LEUKOENCEPHALOPATHY [None]
  - SIMPLE PARTIAL SEIZURES [None]
  - STATUS EPILEPTICUS [None]
